FAERS Safety Report 20303234 (Version 2)
Quarter: 2022Q1

REPORT INFORMATION
  Report Type: Report from Study
  Country: US (occurrence: US)
  Receive Date: 20220106
  Receipt Date: 20220215
  Transmission Date: 20220423
  Serious: No
  Sender: FDA-Public Use
  Company Number: US-NOVARTISTESTPH-NVSC2022US001862

PATIENT
  Sex: Male

DRUGS (3)
  1. PROMACTA [Suspect]
     Active Substance: ELTROMBOPAG OLAMINE
     Indication: Product used for unknown indication
     Dosage: UNK
     Route: 048
     Dates: start: 20211018
  2. PROMACTA [Suspect]
     Active Substance: ELTROMBOPAG OLAMINE
     Dosage: 50 MG(FOR 3 MONTHS)
     Route: 065
  3. PROMACTA [Suspect]
     Active Substance: ELTROMBOPAG OLAMINE
     Dosage: 75 MG
     Route: 065

REACTIONS (7)
  - Feeling abnormal [Unknown]
  - Feeling abnormal [Unknown]
  - Disturbance in attention [Unknown]
  - Balance disorder [Unknown]
  - Nausea [Unknown]
  - Dizziness [Unknown]
  - Drug ineffective [Unknown]
